FAERS Safety Report 6960931-5 (Version None)
Quarter: 2010Q3

REPORT INFORMATION
  Report Type: 
  Country: None (occurrence: None)
  Receive Date: 20100823
  Receipt Date: 20100707
  Transmission Date: 20110219
  Serious: No
  Sender: FDA-Public Use
  Company Number: 015291

PATIENT
  Sex: Male

DRUGS (2)
  1. CIMZIA [Suspect]
     Dosage: SUBCUTANEOUS, 200 MG 1X/14 DAYS SUBCUTANEOUS
     Route: 058
  2. MERCAPTOPURINE [Concomitant]

REACTIONS (1)
  - DRUG INEFFECTIVE [None]
